FAERS Safety Report 20449558 (Version 1)
Quarter: 2022Q1

REPORT INFORMATION
  Report Type: Spontaneous
  Country: US (occurrence: None)
  Receive Date: 20220208
  Receipt Date: 20220208
  Transmission Date: 20220423
  Serious: Yes (Other)
  Sender: FDA-Public Use
  Company Number: None

PATIENT
  Age: 72 Year
  Sex: Female
  Weight: 72 kg

DRUGS (1)
  1. DIHYDROERGOTAMINE [Suspect]
     Active Substance: DIHYDROERGOTAMINE
     Indication: Migraine
     Dosage: OTHER FREQUENCY : DAILY, FOR 3 DOSS;?
     Route: 041
     Dates: start: 20220208, end: 20220208

REACTIONS (1)
  - Adverse drug reaction [None]

NARRATIVE: CASE EVENT DATE: 20220208
